FAERS Safety Report 13007853 (Version 4)
Quarter: 2017Q1

REPORT INFORMATION
  Report Type: Spontaneous
  Country: DE (occurrence: DE)
  Receive Date: 20161207
  Receipt Date: 20170103
  Transmission Date: 20170428
  Serious: Yes (Other)
  Sender: FDA-Public Use
  Company Number: DE-009507513-1612DEU002056

PATIENT
  Age: 78 Year
  Sex: Male
  Weight: 88 kg

DRUGS (8)
  1. METOCLOPRAMIDE. [Concomitant]
     Active Substance: METOCLOPRAMIDE
  2. KEYTRUDA [Suspect]
     Active Substance: PEMBROLIZUMAB
     Indication: SARCOMATOID MESOTHELIOMA
     Dosage: 10 MG/KG BODYWEIGHT, EVERY 15 DAYS
     Dates: start: 20160815, end: 20161012
  3. EMEND [Concomitant]
     Active Substance: APREPITANT
     Route: 048
  4. TILIDIN [Concomitant]
     Active Substance: NALOXONE HYDROCHLORIDE\TILIDINE HYDROCHLORIDE
     Indication: PAIN
     Dosage: 50 MG, UNK
  5. NIVOLUMAB [Concomitant]
     Active Substance: NIVOLUMAB
  6. KEYTRUDA [Suspect]
     Active Substance: PEMBROLIZUMAB
     Indication: PLEURAL MESOTHELIOMA
  7. NOVAMINSULFON [Concomitant]
     Active Substance: METAMIZOLE
     Indication: PAIN
  8. VOMEX A [Concomitant]
     Active Substance: DIMENHYDRINATE

REACTIONS (12)
  - Malignant neoplasm progression [Unknown]
  - General physical health deterioration [Recovering/Resolving]
  - Weight decreased [Recovering/Resolving]
  - Metastases to bone [Unknown]
  - Blood creatinine increased [Unknown]
  - Product use issue [Unknown]
  - Vitamin B12 increased [Unknown]
  - Autoimmune hepatitis [Unknown]
  - Vomiting [Recovering/Resolving]
  - Decreased appetite [Recovering/Resolving]
  - Hepatitis B [Unknown]
  - Off label use [Unknown]

NARRATIVE: CASE EVENT DATE: 2016
